FAERS Safety Report 23983287 (Version 4)
Quarter: 2024Q3

REPORT INFORMATION
  Report Type: Spontaneous
  Country: NL (occurrence: NL)
  Receive Date: 20240617
  Receipt Date: 20240701
  Transmission Date: 20241017
  Serious: Yes (Hospitalization, Other)
  Sender: NOVARTIS
  Company Number: NL-SANDOZ-SDZ2024NL057182

PATIENT
  Age: 42 Year
  Sex: Male
  Weight: 65.9 kg

DRUGS (19)
  1. CLOZAPINE [Interacting]
     Active Substance: CLOZAPINE
     Indication: Schizoaffective disorder
     Dosage: 600 TO 500 MG DAILY, QD
     Route: 065
     Dates: start: 2005, end: 2018
  2. CLOZAPINE [Interacting]
     Active Substance: CLOZAPINE
     Dosage: RESUMED
     Route: 065
     Dates: start: 2019
  3. CLOZAPINE [Interacting]
     Active Substance: CLOZAPINE
     Dosage: 450 MG, QD (DOSE DECREASED)
     Route: 065
  4. CLOZAPINE [Interacting]
     Active Substance: CLOZAPINE
     Dosage: 550 MG, QD
     Route: 065
     Dates: start: 2021, end: 2021
  5. CARBAMAZEPINE [Interacting]
     Active Substance: CARBAMAZEPINE
     Indication: Schizoaffective disorder
     Dosage: 200 MG, BID
     Route: 065
  6. VALPROIC ACID [Suspect]
     Active Substance: VALPROIC ACID
     Indication: Schizoaffective disorder
     Dosage: 2 G, QD
     Route: 065
     Dates: start: 202109, end: 2021
  7. FLUVOXAMINE [Suspect]
     Active Substance: FLUVOXAMINE
     Indication: Schizoaffective disorder
     Dosage: 25 MG
     Route: 065
  8. FLUVOXAMINE [Suspect]
     Active Substance: FLUVOXAMINE
     Dosage: 50 MG
     Route: 065
  9. VALPROATE SODIUM [Suspect]
     Active Substance: VALPROATE SODIUM
     Indication: Schizoaffective disorder
     Dosage: UNK
     Route: 065
  10. LITHIUM CARBONATE [Suspect]
     Active Substance: LITHIUM CARBONATE
     Indication: Schizoaffective disorder
     Dosage: AT BEDTIME
     Route: 065
     Dates: end: 202105
  11. ZUCLOPENTHIXOL [Suspect]
     Active Substance: ZUCLOPENTHIXOL
     Indication: Schizoaffective disorder
     Dosage: 200 MG, BIW
     Route: 065
  12. HALOPERIDOL [Suspect]
     Active Substance: HALOPERIDOL
     Indication: Schizoaffective disorder
     Dosage: 225 MG EVERY 2 WEEKS
     Route: 048
  13. GLYCOPYRRONIUM [Concomitant]
     Active Substance: GLYCOPYRRONIUM
     Indication: Salivary hypersecretion
     Dosage: AT BEDTIME
     Route: 065
  14. GLYCOPYRRONIUM [Concomitant]
     Active Substance: GLYCOPYRRONIUM
     Dosage: 2 MG, HS
     Route: 065
     Dates: start: 2021, end: 2021
  15. LACTULOSE [Concomitant]
     Active Substance: LACTULOSE
     Indication: Constipation prophylaxis
     Dosage: 30 MILLIGRAM
     Route: 065
     Dates: start: 2021, end: 2021
  16. LACTULOSE [Concomitant]
     Active Substance: LACTULOSE
     Dosage: 30 ML
     Route: 065
     Dates: start: 2021, end: 2021
  17. DROPERIDOL [Concomitant]
     Active Substance: DROPERIDOL
     Indication: Product used for unknown indication
     Dosage: UNK UNK, PRN
     Route: 065
     Dates: start: 2021, end: 2021
  18. LORAZEPAM [Concomitant]
     Active Substance: LORAZEPAM
     Indication: Product used for unknown indication
     Dosage: UNK UNK, PRN
     Route: 065
     Dates: start: 2021, end: 2021
  19. MEMANTINE [Concomitant]
     Active Substance: MEMANTINE
     Indication: Product used for unknown indication
     Dosage: 20 MG
     Route: 065
     Dates: start: 2021, end: 2021

REACTIONS (7)
  - Ileus paralytic [Recovering/Resolving]
  - Constipation [Recovering/Resolving]
  - Nausea [Recovering/Resolving]
  - Vomiting [Recovering/Resolving]
  - Drug level changed [Unknown]
  - Drug interaction [Unknown]
  - Drug ineffective [Unknown]
